FAERS Safety Report 9316506 (Version 1)
Quarter: 2013Q2

REPORT INFORMATION
  Report Type: Spontaneous
  Country: US (occurrence: None)
  Receive Date: 20130528
  Receipt Date: 20130528
  Transmission Date: 20140414
  Serious: Yes (Other)
  Sender: FDA-Public Use
  Company Number: None

PATIENT
  Age: 29 Year
  Sex: Female
  Weight: 77.11 kg

DRUGS (1)
  1. SAPHRIS [Suspect]
     Indication: BIPOLAR DISORDER
     Dosage: 1 TIME ONLY
     Route: 060
     Dates: start: 20130522, end: 20130522

REACTIONS (6)
  - Somnolence [None]
  - Glossodynia [None]
  - Hypoaesthesia oral [None]
  - Abnormal dreams [None]
  - Screaming [None]
  - Feeling abnormal [None]
